FAERS Safety Report 8815371 (Version 1)
Quarter: 2012Q4

REPORT INFORMATION
  Report Type: 
  Country: CA (occurrence: CA)
  Receive Date: 20120928
  Receipt Date: 20120928
  Transmission Date: 20130627
  Serious: Yes (Other)
  Sender: FDA-Public Use
  Company Number: CA-009507513-1209CAN011513

PATIENT
  Sex: Female

DRUGS (1)
  1. AERIUS [Suspect]
     Indication: PRODUCT USED FOR UNKNOWN INDICATION
     Dosage: 5 mg, UNK

REACTIONS (2)
  - Hypertensive crisis [Unknown]
  - Palpitations [Unknown]
